FAERS Safety Report 4941140-8 (Version None)
Quarter: 2006Q1

REPORT INFORMATION
  Report Type: 
  Country: None (occurrence: None)
  Receive Date: 20060313
  Receipt Date: 20060306
  Transmission Date: 20060701
  Serious: Yes (Other)
  Sender: FDA-Public Use
  Company Number: JP-JPN-A200600859

PATIENT

DRUGS (2)
  1. FLUTIDE DISKUS [Suspect]
     Dosage: 50MCG PER DAY
     Route: 048
  2. SEREVENT [Suspect]
     Dosage: 50MCG PER DAY
     Route: 048

REACTIONS (1)
  - ERYTHEMA MULTIFORME [None]
